FAERS Safety Report 8770590 (Version 2)
Quarter: 2015Q3

REPORT INFORMATION
  Report Type: Spontaneous
  Country: FR (occurrence: FR)
  Receive Date: 20120906
  Receipt Date: 20150924
  Transmission Date: 20151125
  Serious: Yes (Hospitalization)
  Sender: FDA-Public Use
  Company Number: FR-GILEAD-2012-0060596

PATIENT
  Age: 55 Year
  Sex: Male

DRUGS (7)
  1. VENTOLINE [Concomitant]
     Active Substance: ALBUTEROL
     Route: 055
  2. TENOFOVIR DISOPROXIL FUMARATE. [Suspect]
     Active Substance: TENOFOVIR DISOPROXIL FUMARATE
     Indication: HIV INFECTION
     Route: 048
     Dates: start: 201201, end: 201201
  3. ZIAGEN [Suspect]
     Active Substance: ABACAVIR SULFATE
     Route: 048
     Dates: start: 201201, end: 201201
  4. NORVIR [Suspect]
     Active Substance: RITONAVIR
     Indication: HIV INFECTION
     Route: 048
     Dates: start: 201201, end: 201201
  5. RENITEC [Concomitant]
     Active Substance: ENALAPRIL MALEATE
     Route: 048
  6. PREZISTA [Suspect]
     Active Substance: DARUNAVIR ETHANOLATE
     Indication: HIV INFECTION
     Route: 048
     Dates: start: 201201, end: 201201
  7. METFORMINE [Concomitant]
     Active Substance: METFORMIN HYDROCHLORIDE
     Route: 048

REACTIONS (3)
  - Skin test negative [Unknown]
  - Vomiting [Recovered/Resolved with Sequelae]
  - Generalised oedema [Recovered/Resolved]

NARRATIVE: CASE EVENT DATE: 201201
